FAERS Safety Report 6827468-5 (Version None)
Quarter: 2010Q3

REPORT INFORMATION
  Report Type: 
  Country: None (occurrence: None)
  Receive Date: 20100709
  Receipt Date: 20100625
  Transmission Date: 20110219
  Serious: Yes (Other)
  Sender: FDA-Public Use
  Company Number: PHHY2010JP39779

PATIENT
  Age: 72 Year
  Sex: Female

DRUGS (9)
  1. NEORAL [Suspect]
     Indication: APLASTIC ANAEMIA
     Dosage: 3 MG/ KG
     Route: 048
     Dates: start: 20061101
  2. NEORAL [Suspect]
     Dosage: 300 MG
     Route: 048
     Dates: start: 20070404, end: 20090112
  3. NEORAL [Suspect]
     Dosage: 250 MG
     Route: 048
     Dates: start: 20090924
  4. NEORAL [Suspect]
     Dosage: UNK
     Dates: start: 20100301
  5. PREDONINE [Suspect]
     Indication: APLASTIC ANAEMIA
     Dosage: 40 MG
     Dates: start: 20081201
  6. PREDONINE [Suspect]
     Dosage: 40 MG
  7. 5-AMINOSALICYLIC ACID [Suspect]
     Dosage: UNK
     Route: 048
     Dates: start: 20060101
  8. SALAZOSULFAPYRIDINE [Concomitant]
     Indication: COLITIS ULCERATIVE
  9. PENTASA [Concomitant]
     Indication: COLITIS ULCERATIVE
     Dosage: 2000 MG
     Dates: start: 20061101

REACTIONS (14)
  - APLASTIC ANAEMIA [None]
  - COLITIS ULCERATIVE [None]
  - CYTOMEGALOVIRUS ENTERITIS [None]
  - CYTOMEGALOVIRUS ENTEROCOLITIS [None]
  - CYTOMEGALOVIRUS TEST POSITIVE [None]
  - DECREASED APPETITE [None]
  - GASTRIC ULCER HAEMORRHAGE [None]
  - LARGE INTESTINE OPERATION [None]
  - MELAENA [None]
  - OEDEMA MUCOSAL [None]
  - PANCYTOPENIA [None]
  - PERIPHERAL VASCULAR DISORDER [None]
  - PURPURA [None]
  - PYREXIA [None]
